FAERS Safety Report 14633622 (Version 2)
Quarter: 2018Q1

REPORT INFORMATION
  Report Type: Report from Study
  Country: None (occurrence: GB)
  Receive Date: 20180314
  Receipt Date: 20180314
  Transmission Date: 20180509
  Serious: Yes (Hospitalization)
  Sender: FDA-Public Use
  Company Number: GB-ABBVIE-16K-167-1740015-00

PATIENT
  Age: 47 Year
  Sex: Male
  Weight: 112 kg

DRUGS (2)
  1. HUMIRA [Suspect]
     Active Substance: ADALIMUMAB
     Indication: PSORIASIS
     Route: 058
     Dates: start: 20150415, end: 20160201
  2. ACITRETIN. [Concomitant]
     Active Substance: ACITRETIN
     Indication: PRODUCT USED FOR UNKNOWN INDICATION
     Dates: start: 20130913

REACTIONS (3)
  - Radius fracture [Recovered/Resolved]
  - Fall [Unknown]
  - Post procedural pulmonary embolism [Unknown]

NARRATIVE: CASE EVENT DATE: 20160201
